FAERS Safety Report 9057254 (Version 1)
Quarter: 2013Q1

REPORT INFORMATION
  Report Type: Spontaneous
  Country: SI (occurrence: SI)
  Receive Date: 20130131
  Receipt Date: 20130131
  Transmission Date: 20140127
  Serious: Yes (Hospitalization)
  Sender: FDA-Public Use
  Company Number: SI-GLAXOSMITHKLINE-B0851368A

PATIENT
  Age: 86 None
  Sex: Female

DRUGS (3)
  1. REVOLADE [Suspect]
     Indication: IDIOPATHIC THROMBOCYTOPENIC PURPURA
     Dosage: 50MG PER DAY
     Route: 048
     Dates: start: 20110422
  2. ALENDRONATE [Concomitant]
     Indication: OSTEOPOROSIS
     Dosage: 70MG WEEKLY
     Route: 048
  3. PERINDOPRIL [Concomitant]
     Indication: HYPERTENSION
     Dosage: 4MG PER DAY
     Route: 048

REACTIONS (5)
  - Dyshidrotic eczema [Recovering/Resolving]
  - Skin exfoliation [Recovering/Resolving]
  - Skin reaction [Recovering/Resolving]
  - Skin disorder [Recovering/Resolving]
  - Fungal skin infection [Unknown]
